FAERS Safety Report 13863968 (Version 3)
Quarter: 2017Q3

REPORT INFORMATION
  Report Type: Spontaneous
  Country: US (occurrence: US)
  Receive Date: 20170814
  Receipt Date: 20170828
  Transmission Date: 20171127
  Serious: Yes (Hospitalization)
  Sender: FDA-Public Use
  Company Number: US-SUNOVION-2017SUN003499

PATIENT
  Age: 63 Year
  Sex: Female
  Weight: 93.42 kg

DRUGS (5)
  1. INVEGA SUSTENNA [Concomitant]
     Active Substance: PALIPERIDONE PALMITATE
  2. LATUDA [Suspect]
     Active Substance: LURASIDONE HYDROCHLORIDE
     Indication: PSYCHOTIC DISORDER
  3. LITHIUM. [Concomitant]
     Active Substance: LITHIUM
  4. LATUDA [Suspect]
     Active Substance: LURASIDONE HYDROCHLORIDE
     Indication: DEPRESSION
     Dosage: 40 MG, HS
     Route: 048
     Dates: start: 20140701, end: 20160412
  5. DEPAKOTE ER [Concomitant]
     Active Substance: DIVALPROEX SODIUM
     Indication: AFFECTIVE DISORDER
     Dosage: UNK
     Dates: start: 2009, end: 201605

REACTIONS (7)
  - Negative thoughts [Recovered/Resolved]
  - Tachyphrenia [Recovered/Resolved]
  - Anxiety [Recovered/Resolved]
  - Mania [Recovered/Resolved]
  - Off label use [Unknown]
  - Psychotic disorder [Recovered/Resolved]
  - Paranoia [Recovered/Resolved]

NARRATIVE: CASE EVENT DATE: 201604
